FAERS Safety Report 11757336 (Version 1)
Quarter: 2015Q4

REPORT INFORMATION
  Report Type: Report from Study
  Country: AR (occurrence: AR)
  Receive Date: 20151120
  Receipt Date: 20151120
  Transmission Date: 20160304
  Serious: Yes (Death)
  Sender: FDA-Public Use
  Company Number: PHHY2015AR044001

PATIENT
  Age: 80 Year
  Sex: Female

DRUGS (2)
  1. AFINITOR [Suspect]
     Active Substance: EVEROLIMUS
     Dosage: 5 MG, QD
     Route: 048
     Dates: start: 20150412
  2. AFINITOR [Suspect]
     Active Substance: EVEROLIMUS
     Indication: BREAST CANCER
     Dosage: 10 MG, QD
     Route: 065
     Dates: start: 20150401, end: 20150411

REACTIONS (11)
  - Hypokinesia [Not Recovered/Not Resolved]
  - Myalgia [Unknown]
  - Pyrexia [Unknown]
  - Constipation [Recovered/Resolved]
  - Hypotension [Unknown]
  - General physical health deterioration [Not Recovered/Not Resolved]
  - Vulvovaginal burning sensation [Recovered/Resolved]
  - Pain in extremity [Unknown]
  - Malaise [Fatal]
  - Decreased appetite [Unknown]
  - Stomatitis [Recovered/Resolved]

NARRATIVE: CASE EVENT DATE: 20150402
